FAERS Safety Report 8398165-2 (Version None)
Quarter: 2012Q2

REPORT INFORMATION
  Report Type: 
  Country: None (occurrence: None)
  Receive Date: 20120323
  Receipt Date: 20110307
  Transmission Date: 20120825
  Serious: Yes (Other)
  Sender: FDA-Public Use
  Company Number: 163-21880-11011386

PATIENT
  Age: 73 Year
  Sex: Male
  Weight: 120.2 kg

DRUGS (16)
  1. REVLIMID [Suspect]
  2. POTASSIUM CHLORIDE [Concomitant]
  3. REVLIMID [Suspect]
     Indication: MULTIPLE MYELOMA
     Dosage: 25 MG, MON.WED.FRI., PO
     Route: 048
     Dates: start: 20100715, end: 20110125
  4. REVLIMID [Suspect]
     Indication: MULTIPLE MYELOMA
     Dosage: 25 MG, MON.WED.FRI., PO
     Route: 048
     Dates: start: 20110201
  5. MIRAPEX [Concomitant]
  6. DEXAMETHASONE [Concomitant]
  7. ANDROGEL [Concomitant]
  8. CALCIUM WITH VITAMIN D (CALCIUM WITH VITAMIN D) [Concomitant]
  9. CLOTRIMAZOLE [Concomitant]
  10. WARFARIN SODIUM [Concomitant]
  11. PROBIOTIC + ACIDOPHILUS (LACTOBACILLUS ACIDOPHILUS) [Concomitant]
  12. ASPIRIN [Concomitant]
  13. FIBERCON (POLYCARBOPHIL CALCIUM) (TABLETS) [Concomitant]
  14. DIGOXIN [Concomitant]
  15. METOPROLOL SUCCINATE [Concomitant]
  16. NITROGLYCERIN [Concomitant]

REACTIONS (7)
  - CONTUSION [None]
  - MUSCLE SPASMS [None]
  - PLEURAL EFFUSION [None]
  - DYSPNOEA [None]
  - DIARRHOEA [None]
  - RASH [None]
  - GASTROINTESTINAL PAIN [None]
